FAERS Safety Report 6004456-2 (Version None)
Quarter: 2008Q4

REPORT INFORMATION
  Report Type: 
  Country: None (occurrence: None)
  Receive Date: 20081216
  Receipt Date: 20081209
  Transmission Date: 20090506
  Serious: Yes (Other)
  Sender: FDA-Public Use
  Company Number: JP-MERCK-0812USA02685

PATIENT
  Age: 70 Year
  Sex: Male

DRUGS (6)
  1. SINGULAIR [Suspect]
     Route: 048
     Dates: start: 20080924, end: 20081106
  2. RULID [Concomitant]
     Route: 048
     Dates: start: 20080924, end: 20081106
  3. HERBS (UNSPECIFIED) [Concomitant]
     Route: 048
     Dates: start: 20080924, end: 20081106
  4. AMARYL [Concomitant]
     Indication: DIABETES MELLITUS
     Route: 048
     Dates: end: 20081106
  5. MELBIN [Concomitant]
     Indication: DIABETES MELLITUS
     Route: 048
     Dates: end: 20080904
  6. METFORMIN HCL [Concomitant]
     Indication: DIABETES MELLITUS
     Route: 048
     Dates: start: 20080904, end: 20081106

REACTIONS (1)
  - LIVER DISORDER [None]
